FAERS Safety Report 6610999-0 (Version None)
Quarter: 2010Q1

REPORT INFORMATION
  Report Type: 
  Country: None (occurrence: None)
  Receive Date: 20100222
  Receipt Date: 20100208
  Transmission Date: 20100710
  Serious: Yes (Hospitalization)
  Sender: FDA-Public Use
  Company Number: 015069

PATIENT
  Age: 42 Year
  Sex: Male
  Weight: 73 kg

DRUGS (3)
  1. PRIALT [Suspect]
     Indication: DRUG USE FOR UNKNOWN INDICATION
     Dosage: , ONCE/HOUR, INTRATHECAL , 0.375 UG, ONCE/HOUR, INTRATHECAL
     Route: 037
     Dates: start: 20090701, end: 20091201
  2. PRIALT [Suspect]
     Indication: DRUG USE FOR UNKNOWN INDICATION
     Dosage: , ONCE/HOUR, INTRATHECAL , 0.375 UG, ONCE/HOUR, INTRATHECAL
     Route: 037
     Dates: start: 20091201, end: 20091222
  3. BACLOFEN [Concomitant]

REACTIONS (6)
  - HALLUCINATION [None]
  - HYPERTHERMIA [None]
  - INCOHERENT [None]
  - MENTAL DISORDER [None]
  - OBSESSIVE-COMPULSIVE DISORDER [None]
  - WEIGHT DECREASED [None]
